FAERS Safety Report 24334308 (Version 1)
Quarter: 2024Q3

REPORT INFORMATION
  Report Type: Report from Study
  Country: US (occurrence: US)
  Receive Date: 20240918
  Receipt Date: 20240918
  Transmission Date: 20241016
  Serious: Yes (Hospitalization)
  Sender: TAIHO ONCOLOGY INC
  Company Number: US-TAIHOP-2024-008789

PATIENT
  Age: 59 Year
  Sex: Male
  Weight: 115.03 kg

DRUGS (1)
  1. LONSURF [Suspect]
     Active Substance: TIPIRACIL HYDROCHLORIDE\TRIFLURIDINE
     Indication: Rectal cancer
     Dosage: FORM STRENGTH AND CYCLE WERE UNKNOWN
     Route: 048
     Dates: start: 20240105

REACTIONS (1)
  - Pain [Unknown]
